FAERS Safety Report 9418878 (Version 1)
Quarter: 2013Q3

REPORT INFORMATION
  Report Type: Spontaneous
  Country: US (occurrence: US)
  Receive Date: 20130725
  Receipt Date: 20130725
  Transmission Date: 20140515
  Serious: No
  Sender: FDA-Public Use
  Company Number: US-BAYER-2013-089831

PATIENT
  Sex: Female

DRUGS (2)
  1. ALEVE CAPLET [Suspect]
     Dosage: UNK DF, UNK
     Route: 048
  2. ALEVE CAPLET [Suspect]
     Dosage: 2 DF, UNK
     Route: 048
     Dates: start: 20130719, end: 20130719

REACTIONS (1)
  - Drug ineffective [None]
